FAERS Safety Report 22206544 (Version 1)
Quarter: 2023Q2

REPORT INFORMATION
  Report Type: Spontaneous
  Country: SI (occurrence: SI)
  Receive Date: 20230413
  Receipt Date: 20230413
  Transmission Date: 20230722
  Serious: Yes (Other)
  Sender: FDA-Public Use
  Company Number: SI-BAYER-2022A047124

PATIENT
  Age: 63 Year
  Sex: Female

DRUGS (2)
  1. XARELTO [Suspect]
     Active Substance: RIVAROXABAN
     Indication: Deep vein thrombosis
     Dosage: UNK
     Route: 048
     Dates: start: 20220116
  2. PEMBROLIZUMAB [Concomitant]
     Active Substance: PEMBROLIZUMAB

REACTIONS (5)
  - Lung neoplasm malignant [Unknown]
  - Bronchial obstruction [Unknown]
  - Haemoptysis [Unknown]
  - Pleural effusion [Unknown]
  - Atelectasis [Unknown]

NARRATIVE: CASE EVENT DATE: 20220301
